FAERS Safety Report 4505086-1 (Version None)
Quarter: 2004Q4

REPORT INFORMATION
  Report Type: 
  Country: None (occurrence: None)
  Receive Date: 20041117
  Receipt Date: 20041117
  Transmission Date: 20050328
  Serious: Yes (Hospitalization)
  Sender: FDA-Public Use
  Company Number: None

PATIENT
  Age: 66 Year
  Sex: Male

DRUGS (7)
  1. GABAPENTIN [Suspect]
     Indication: AFFECTIVE DISORDER
     Dosage: 300 MG TID
     Dates: start: 20010201
  2. FOSINOPRIL SODIUM [Concomitant]
  3. METFORMIN HCL [Concomitant]
  4. LORATADINE [Concomitant]
  5. PSYLLIUM [Concomitant]
  6. SENNAKOT [Concomitant]
  7. NPH INSULIN [Concomitant]

REACTIONS (1)
  - MUSCLE TWITCHING [None]
